FAERS Safety Report 7686716-2 (Version None)
Quarter: 2011Q3

REPORT INFORMATION
  Report Type: 
  Country: None (occurrence: None)
  Receive Date: 20110811
  Receipt Date: 20110728
  Transmission Date: 20111222
  Serious: Yes (Other)
  Sender: FDA-Public Use
  Company Number: JP-2011-11072

PATIENT
  Age: 62 Year
  Sex: Male

DRUGS (4)
  1. TANATRIL (IMIDAPRIL HYDROCHLORIDE)TABLET [Suspect]
     Dosage: ORAL
     Route: 048
  2. SAMSCA [Suspect]
     Dosage: ORAL
     Route: 048
     Dates: start: 20101221, end: 20101228
  3. SAMSCA [Suspect]
     Dosage: ORAL
     Route: 048
     Dates: start: 20110114
  4. FLUITRAN (TRICHLORMETHIAZIDE)TABLET [Suspect]
     Dosage: ORAL
     Route: 048

REACTIONS (2)
  - HYPOTENSION [None]
  - DRUG INTERACTION [None]
